FAERS Safety Report 10121214 (Version 4)
Quarter: 2014Q3

REPORT INFORMATION
  Report Type: Spontaneous
  Country: IT (occurrence: IT)
  Receive Date: 20140425
  Receipt Date: 20140908
  Transmission Date: 20150326
  Serious: Yes (Death, Other)
  Sender: FDA-Public Use
  Company Number: IT-ELI_LILLY_AND_COMPANY-IT201404007616

PATIENT
  Age: 77 Year
  Sex: Male
  Weight: 62 kg

DRUGS (9)
  1. FOLIC ACID. [Concomitant]
     Active Substance: FOLIC ACID
  2. DOBETIN                            /00056201/ [Concomitant]
     Active Substance: CYANOCOBALAMIN
     Dosage: 1000 DF, UNKNOWN
  3. METOPROLOL [Concomitant]
     Active Substance: METOPROLOL
     Dosage: 100 MG, UNKNOWN
  4. AMLODIPINE MALEATE [Concomitant]
     Active Substance: AMLODIPINE MALEATE
  5. CARBOPLATIN. [Suspect]
     Active Substance: CARBOPLATIN
     Indication: LUNG ADENOCARCINOMA STAGE IV
     Dosage: 230 MG, CYCLICAL
     Route: 042
     Dates: start: 20140123, end: 20140411
  6. ATORVASTATIN CALCIUM. [Concomitant]
     Active Substance: ATORVASTATIN CALCIUM
     Dosage: 20 MG, UNKNOWN
  7. CARDIOASPIRIN [Concomitant]
     Active Substance: ASPIRIN
  8. RAMIPRIL. [Concomitant]
     Active Substance: RAMIPRIL
     Dosage: 2.5 MG, UNKNOWN
  9. ALIMTA [Suspect]
     Active Substance: PEMETREXED DISODIUM
     Indication: LUNG ADENOCARCINOMA STAGE IV
     Dosage: 650 MG, CYCLICAL
     Route: 042
     Dates: start: 20140123, end: 20140411

REACTIONS (8)
  - Productive cough [Unknown]
  - Pancytopenia [Fatal]
  - Confusional state [Fatal]
  - General physical health deterioration [Not Recovered/Not Resolved]
  - Respiratory failure [Fatal]
  - Dyspnoea [Fatal]
  - Febrile neutropenia [Fatal]
  - Off label use [Unknown]

NARRATIVE: CASE EVENT DATE: 20140408
